FAERS Safety Report 5454885-0 (Version None)
Quarter: 2007Q3

REPORT INFORMATION
  Report Type: 
  Country: None (occurrence: None)
  Receive Date: 20070917
  Receipt Date: 20061017
  Transmission Date: 20080115
  Serious: No
  Sender: FDA-Public Use
  Company Number: US-ASTRAZENECA-2006UW20135

PATIENT
  Sex: Female

DRUGS (1)
  1. SEROQUEL [Suspect]
     Indication: ANXIETY
     Route: 048
     Dates: start: 20060101

REACTIONS (5)
  - FEELING OF BODY TEMPERATURE CHANGE [None]
  - INSOMNIA [None]
  - PARANOIA [None]
  - THINKING ABNORMAL [None]
  - UNEVALUABLE EVENT [None]
